FAERS Safety Report 24732008 (Version 2)
Quarter: 2024Q4

REPORT INFORMATION
  Report Type: Spontaneous
  Country: US (occurrence: US)
  Receive Date: 20241213
  Receipt Date: 20241218
  Transmission Date: 20250115
  Serious: Yes (Hospitalization, Other)
  Sender: TORRENT PHARMA INC.
  Company Number: US-TORRENT-00013893

PATIENT
  Age: 76 Year
  Sex: Male

DRUGS (2)
  1. CLOPIDOGREL [Suspect]
     Active Substance: CLOPIDOGREL BISULFATE
     Indication: Antiplatelet therapy
     Dosage: UNKNOWN
     Route: 065
  2. APIXABAN [Suspect]
     Active Substance: APIXABAN
     Indication: Atrial flutter
     Dosage: UNKNOWN
     Route: 065

REACTIONS (4)
  - Rectal ulcer haemorrhage [Not Recovered/Not Resolved]
  - Disease recurrence [Not Recovered/Not Resolved]
  - Anaemia [Not Recovered/Not Resolved]
  - Haemodynamic instability [Unknown]
